FAERS Safety Report 4491820-6 (Version None)
Quarter: 2004Q4

REPORT INFORMATION
  Report Type: 
  Country: None (occurrence: None)
  Receive Date: 20041028
  Receipt Date: 20041028
  Transmission Date: 20050328
  Serious: Yes (Hospitalization, Disabling)
  Sender: FDA-Public Use
  Company Number: None

PATIENT
  Age: 17 Year
  Sex: Male
  Weight: 68.0396 kg

DRUGS (3)
  1. PAXIL CR [Suspect]
     Indication: DEPRESSION
     Dosage: 1  DAY   ORAL
     Route: 048
     Dates: start: 20020106, end: 20030329
  2. LEXAPRO [Suspect]
     Indication: DEPRESSION
     Dosage: 1 DAY   ORAL
     Route: 048
     Dates: start: 20030427, end: 20030825
  3. LEXAPRO [Suspect]
     Indication: PANIC ATTACK
     Dosage: 1 DAY   ORAL
     Route: 048
     Dates: start: 20030427, end: 20030825

REACTIONS (2)
  - IMPAIRED WORK ABILITY [None]
  - PANIC ATTACK [None]
